FAERS Safety Report 6928919-8 (Version None)
Quarter: 2010Q3

REPORT INFORMATION
  Report Type: 
  Country: None (occurrence: None)
  Receive Date: 20100812
  Receipt Date: 20090602
  Transmission Date: 20110219
  Serious: Yes (Hospitalization, Other)
  Sender: FDA-Public Use
  Company Number: 2008PV000072

PATIENT
  Age: 54 Year
  Sex: Female

DRUGS (9)
  1. DEPOCYT [Suspect]
     Indication: METASTASES TO MENINGES
     Dosage: 50 MG; INTH
     Route: 037
     Dates: start: 20080627, end: 20080826
  2. RITUXIMAB (RITUXIMAB) [Suspect]
     Indication: NON-HODGKIN'S LYMPHOMA
     Dosage: 685 MG; IV
     Route: 042
     Dates: start: 20080624, end: 20080825
  3. METHYLPREDNISOLONE [Suspect]
     Dosage: 110 MG;QD;IV
     Route: 042
     Dates: start: 20080625, end: 20080831
  4. VINCRISTINE [Suspect]
     Dosage: 2 MG;QD;IV
     Route: 042
     Dates: start: 20080625, end: 20080716
  5. METHOTREXATE [Suspect]
     Dosage: 5450 MG;QD;IV
     Route: 042
     Dates: start: 20080625, end: 20080826
  6. DOXORUBICIN HCL [Suspect]
     Dosage: 109 MG;QD;IV
     Route: 042
     Dates: start: 20080626, end: 20080717
  7. CYCLOPHOSPHAMIDE [Suspect]
     Dosage: 450 MG;BID;IV
     Route: 042
     Dates: start: 20080626, end: 20080719
  8. CYTARABINE [Suspect]
     Dosage: 180 MG;QD;IV
     Route: 042
     Dates: start: 20080606, end: 20080831
  9. FOLIC ACID [Concomitant]

REACTIONS (4)
  - ASTHENIA [None]
  - BLOOD PRESSURE DECREASED [None]
  - CARDIOMYOPATHY [None]
  - ESCHERICHIA SEPSIS [None]
